FAERS Safety Report 15145244 (Version 1)
Quarter: 2018Q3

REPORT INFORMATION
  Report Type: Spontaneous
  Country: US (occurrence: US)
  Receive Date: 20180713
  Receipt Date: 20180713
  Transmission Date: 20181010
  Serious: No
  Sender: FDA-Public Use
  Company Number: US-INTERCEPT-PMOCA2018000504

PATIENT

DRUGS (6)
  1. OCALIVA [Suspect]
     Active Substance: OBETICHOLIC ACID
     Indication: PRIMARY BILIARY CHOLANGITIS
     Dosage: 5 MG, QD
     Route: 048
     Dates: start: 20170829
  2. VITAMIN D3 [Concomitant]
     Active Substance: CHOLECALCIFEROL
  3. URSODIOL. [Concomitant]
     Active Substance: URSODIOL
  4. RANITIDINE. [Concomitant]
     Active Substance: RANITIDINE
  5. CALCIUM [Concomitant]
     Active Substance: CALCIUM
  6. ADVIL (MEFENAMIC ACID) [Concomitant]
     Active Substance: MEFENAMIC ACID

REACTIONS (2)
  - Joint swelling [Unknown]
  - Oedema peripheral [Unknown]
